FAERS Safety Report 9852373 (Version 1)
Quarter: 2014Q1

REPORT INFORMATION
  Report Type: Spontaneous
  Country: US (occurrence: None)
  Receive Date: 20140128
  Receipt Date: 20140128
  Transmission Date: 20141002
  Serious: Yes (Disabling, Other)
  Sender: FDA-Public Use
  Company Number: None

PATIENT
  Age: 31 Year
  Sex: Female
  Weight: 61.24 kg

DRUGS (3)
  1. BUPROPION [Suspect]
     Indication: DEPRESSION
     Dosage: 1 ALTERNATING PILLS EACH DAY, ONCE DAILY, TAKEN BY MOUTH
     Route: 048
     Dates: start: 20131223, end: 20140127
  2. BUPROPION [Suspect]
     Indication: ANXIETY
     Dosage: 1 ALTERNATING PILLS EACH DAY, ONCE DAILY, TAKEN BY MOUTH
     Route: 048
     Dates: start: 20131223, end: 20140127
  3. BUPROPION [Suspect]
     Indication: EMOTIONAL DISORDER
     Dosage: 1 ALTERNATING PILLS EACH DAY, ONCE DAILY, TAKEN BY MOUTH
     Route: 048
     Dates: start: 20131223, end: 20140127

REACTIONS (6)
  - Depression [None]
  - Anxiety [None]
  - Paranoia [None]
  - Apathy [None]
  - Hallucination [None]
  - Product substitution issue [None]
